FAERS Safety Report 5615500-6 (Version None)
Quarter: 2008Q1

REPORT INFORMATION
  Report Type: 
  Country: None (occurrence: None)
  Receive Date: 20080206
  Receipt Date: 20080125
  Transmission Date: 20080703
  Serious: Yes (Other)
  Sender: FDA-Public Use
  Company Number: US-ELI_LILLY_AND_COMPANY-US200710004542

PATIENT
  Sex: Female
  Weight: 54.422 kg

DRUGS (11)
  1. FORTEO [Suspect]
     Indication: OSTEOPOROSIS
     Dosage: UNK, UNK
     Dates: start: 20071016, end: 20071101
  2. SOTALOL HYDROCHLORIDE [Concomitant]
     Indication: ATRIAL FIBRILLATION
  3. CITRACAL + D [Concomitant]
     Dosage: 250-200 MG-UNIT, UNK
  4. ALBUTEROL [Concomitant]
     Dosage: 90 UG, 4/D AS NEEDED
  5. SIMVASTATIN [Concomitant]
     Dosage: 10 MG, EACH EVENING
  6. COPAXONE [Concomitant]
     Indication: MULTIPLE SCLEROSIS
     Dosage: 20 MG, DAILY (1/D)
  7. ASCORBIC ACID [Concomitant]
     Dosage: 500 MG, DAILY (1/D)
  8. MULTI-VITAMIN [Concomitant]
     Dosage: UNK, DAILY (1/D)
  9. FISH OIL [Concomitant]
     Dosage: UNK, DAILY (1/D)
  10. GARLIC [Concomitant]
     Dosage: UNK, DAILY (1/D)
  11. TIOTROPIUM BROMIDE [Concomitant]
     Dosage: 18 UG, DAILY (1/D)

REACTIONS (13)
  - ABNORMAL SENSATION IN EYE [None]
  - ASTHENIA [None]
  - CARDIAC FLUTTER [None]
  - CHEST DISCOMFORT [None]
  - DIZZINESS [None]
  - DYSPNOEA [None]
  - EAR DISCOMFORT [None]
  - EYE IRRITATION [None]
  - HEADACHE [None]
  - INJECTION SITE ERYTHEMA [None]
  - LIMB DISCOMFORT [None]
  - MUSCLE TIGHTNESS [None]
  - SYNCOPE [None]
